FAERS Safety Report 7298251-4 (Version None)
Quarter: 2011Q1

REPORT INFORMATION
  Report Type: 
  Country: None (occurrence: None)
  Receive Date: 20110204
  Receipt Date: 20110125
  Transmission Date: 20110831
  Serious: Yes (Other)
  Sender: FDA-Public Use
  Company Number: PD 141

PATIENT

DRUGS (7)
  1. LEVETIRACETAM [Suspect]
     Indication: EPILEPSY
     Dosage: 500-3,000 MG / DAY
  2. PHENOBARBITAL [Concomitant]
  3. LAMOTRIGINE [Concomitant]
  4. VALPROIC ACID [Concomitant]
  5. PHENYTOIN [Concomitant]
  6. CARBAMAZEPINE [Concomitant]
  7. TOPIRAMATE [Concomitant]

REACTIONS (9)
  - LETHARGY [None]
  - HALLUCINATION, AUDITORY [None]
  - RASH [None]
  - ANGER [None]
  - ADVERSE DRUG REACTION [None]
  - AGGRESSION [None]
  - BICYTOPENIA [None]
  - DIZZINESS [None]
  - SOMNOLENCE [None]
